FAERS Safety Report 4363949-4 (Version None)
Quarter: 2004Q2

REPORT INFORMATION
  Report Type: 
  Country: None (occurrence: None)
  Receive Date: 20040525
  Receipt Date: 20040517
  Transmission Date: 20050107
  Serious: Yes (Other)
  Sender: FDA-Public Use
  Company Number: PHEH2004US05405

PATIENT
  Age: 77 Year
  Sex: Female

DRUGS (2)
  1. LOTREL [Suspect]
     Indication: HYPERTENSION
     Dosage: 2.5 MG AMLOD/10 MG BENAZ QD
     Dates: start: 20020101
  2. EVISTA [Concomitant]

REACTIONS (6)
  - DEHYDRATION [None]
  - DIZZINESS [None]
  - DYSGEUSIA [None]
  - HYPOAESTHESIA [None]
  - NAUSEA [None]
  - POLLAKIURIA [None]
